FAERS Safety Report 25108879 (Version 1)
Quarter: 2025Q1

REPORT INFORMATION
  Report Type: Spontaneous
  Country: US (occurrence: US)
  Receive Date: 20250322
  Receipt Date: 20250322
  Transmission Date: 20250408
  Serious: No
  Sender: SANOFI AVENTIS
  Company Number: US-SANOFI-02456351

PATIENT
  Sex: Female

DRUGS (1)
  1. LANTUS SOLOSTAR [Suspect]
     Active Substance: INSULIN GLARGINE
     Indication: Type 2 diabetes mellitus
     Dosage: 74 IU, QD ABOUT 20 YEARS
     Dates: start: 2005

REACTIONS (3)
  - Product dispensing error [Unknown]
  - Accidental exposure to product [Unknown]
  - Exposure via skin contact [Unknown]
